FAERS Safety Report 16056106 (Version 3)
Quarter: 2019Q2

REPORT INFORMATION
  Report Type: Spontaneous
  Country: CN (occurrence: CN)
  Receive Date: 20190311
  Receipt Date: 20190402
  Transmission Date: 20190711
  Serious: Yes (Death, Other)
  Sender: FDA-Public Use
  Company Number: CN-BEH-2019100069

PATIENT
  Age: 79 Year
  Sex: Male

DRUGS (2)
  1. ALBURX [Suspect]
     Active Substance: ALBUMIN HUMAN
     Indication: LYMPHOMA
  2. ALBURX [Suspect]
     Active Substance: ALBUMIN HUMAN
     Indication: HYPOPROTEINAEMIA
     Dosage: UNK
     Route: 041
     Dates: start: 20190228

REACTIONS (5)
  - Death [Fatal]
  - Aphasia [Not Recovered/Not Resolved]
  - Unevaluable event [Unknown]
  - Diarrhoea [Unknown]
  - Seizure [Unknown]

NARRATIVE: CASE EVENT DATE: 20190228
